FAERS Safety Report 20945730 (Version 4)
Quarter: 2022Q4

REPORT INFORMATION
  Report Type: Spontaneous
  Country: US (occurrence: US)
  Receive Date: 20220610
  Receipt Date: 20221013
  Transmission Date: 20230112
  Serious: No
  Sender: FDA-Public Use
  Company Number: US-PFIZER INC-202200811929

PATIENT
  Age: 52 Year
  Sex: Female

DRUGS (3)
  1. XELJANZ XR [Suspect]
     Active Substance: TOFACITINIB CITRATE
     Indication: Rheumatoid arthritis
     Dosage: 11 MG, 1X/DAY
     Route: 048
     Dates: start: 20220531
  2. XELJANZ XR [Suspect]
     Active Substance: TOFACITINIB CITRATE
     Indication: Alopecia
  3. LEFLUNOMIDE [Concomitant]
     Active Substance: LEFLUNOMIDE
     Indication: Alopecia
     Dosage: UNK

REACTIONS (18)
  - Therapeutic response unexpected [Unknown]
  - Fatigue [Unknown]
  - Back pain [Unknown]
  - Arthralgia [Unknown]
  - Feeling abnormal [Unknown]
  - Boredom [Unknown]
  - Frustration tolerance decreased [Unknown]
  - Pollakiuria [Unknown]
  - Chromaturia [Unknown]
  - Urine abnormality [Unknown]
  - Urine odour abnormal [Unknown]
  - Renal pain [Recovered/Resolved with Sequelae]
  - Back pain [Recovered/Resolved with Sequelae]
  - Urinary tract infection [Unknown]
  - Paraesthesia oral [Unknown]
  - Aphthous ulcer [Unknown]
  - Sensitivity to weather change [Unknown]
  - Pain [Unknown]

NARRATIVE: CASE EVENT DATE: 20220101
